FAERS Safety Report 9148379 (Version 1)
Quarter: 2013Q1

REPORT INFORMATION
  Report Type: Spontaneous
  Country: BR (occurrence: BR)
  Receive Date: 20130308
  Receipt Date: 20130308
  Transmission Date: 20140127
  Serious: Yes (Other)
  Sender: FDA-Public Use
  Company Number: BR-ACCORD-016623

PATIENT
  Age: 57 Year
  Sex: Male
  Weight: 59.1 kg

DRUGS (6)
  1. PACLITAXEL [Suspect]
     Indication: LUNG NEOPLASM MALIGNANT
     Dosage: 2ND CYCLE
     Route: 042
     Dates: start: 20130131, end: 20130131
  2. NAUSEDRON [Concomitant]
     Route: 042
     Dates: start: 20130131, end: 20130131
  3. DEXAMETHASONE [Concomitant]
     Route: 042
     Dates: start: 20130131, end: 20130131
  4. METOCHLOPRAMIDE [Concomitant]
     Route: 042
     Dates: start: 20130131, end: 20130131
  5. CISPLATIN [Concomitant]
     Indication: LUNG NEOPLASM MALIGNANT
     Dates: start: 20120110
  6. RANITIDINE [Concomitant]
     Route: 042
     Dates: start: 20130131, end: 20130131

REACTIONS (5)
  - Muscle contractions involuntary [Recovered/Resolved]
  - Hypertension [Recovered/Resolved]
  - Hyperaemia [Recovered/Resolved]
  - Dyspnoea [Recovered/Resolved]
  - Tachycardia [Recovered/Resolved]
